FAERS Safety Report 9693932 (Version 1)
Quarter: 2013Q4

REPORT INFORMATION
  Report Type: Spontaneous
  Country: US (occurrence: US)
  Receive Date: 20131118
  Receipt Date: 20131118
  Transmission Date: 20140711
  Serious: No
  Sender: FDA-Public Use
  Company Number: US-B.I. PHARMACEUTICALS,INC./RIDGEFIELD-2013-BI-36149BP

PATIENT
  Age: 58 Year
  Sex: Female
  Weight: 60 kg

DRUGS (11)
  1. SPIRIVA [Suspect]
     Indication: CHRONIC OBSTRUCTIVE PULMONARY DISEASE
     Dosage: 18 MCG
     Route: 055
     Dates: start: 201308, end: 201309
  2. ADVAIR [Concomitant]
     Indication: CHRONIC OBSTRUCTIVE PULMONARY DISEASE
     Dosage: FORMULATION: INHALATION AEROSOL, STRENGTH: 500 MCG / 50 MCG; DAILY DOSE: 1000 MCG / 100 MCG
     Route: 055
  3. AMLODIPINE [Concomitant]
     Indication: HYPERTENSION
     Dosage: 10 MG
     Route: 048
  4. ASPIRIN [Concomitant]
     Dosage: 325 MG
     Route: 048
  5. CLONOPINE [Concomitant]
     Indication: ANXIETY DISORDER
     Dosage: 1.5 MG
     Route: 048
  6. FUROSEMIDE [Concomitant]
     Indication: CARDIAC DISORDER
     Dosage: 40 MG
     Route: 048
  7. LEVOTHYROXINE [Concomitant]
     Indication: HYPOTHYROIDISM
     Dosage: 125 MCG
     Route: 048
  8. METOPROLOL [Concomitant]
     Indication: HYPERTENSION
     Dosage: 50 MG
     Route: 048
  9. PAXIL [Concomitant]
     Indication: DEPRESSION
     Dosage: 30 MG
     Route: 048
  10. ROSUVASTATIN [Concomitant]
     Indication: CARDIAC DISORDER
     Dosage: 40 MG
     Route: 048
  11. AMIODARONE [Concomitant]
     Dosage: 200 MG
     Route: 048

REACTIONS (2)
  - Hypertension [Recovered/Resolved]
  - Anxiety [Recovered/Resolved]
